FAERS Safety Report 25259308 (Version 1)
Quarter: 2025Q2

REPORT INFORMATION
  Report Type: Spontaneous
  Country: US (occurrence: None)
  Receive Date: 20250430
  Receipt Date: 20250430
  Transmission Date: 20250717
  Serious: Yes (Disabling)
  Sender: FDA-CTU
  Company Number: None

PATIENT

DRUGS (3)
  1. ARISTADA [Suspect]
     Active Substance: ARIPIPRAZOLE LAUROXIL
  2. aspirin tyenall [Concomitant]
  3. TIZANIDINE [Concomitant]
     Active Substance: TIZANIDINE

REACTIONS (5)
  - Arthralgia [None]
  - Dysstasia [None]
  - Movement disorder [None]
  - Tongue disorder [None]
  - Impaired work ability [None]

NARRATIVE: CASE EVENT DATE: 20250218
